FAERS Safety Report 5006053-4 (Version None)
Quarter: 2006Q1

REPORT INFORMATION
  Report Type: 
  Country: None (occurrence: None)
  Receive Date: 20060323
  Receipt Date: 20050817
  Transmission Date: 20060701
  Serious: Yes (Hospitalization)
  Sender: FDA-Public Use
  Company Number: 2005-08-1223

PATIENT
  Age: 56 Year
  Sex: Female
  Weight: 55 kg

DRUGS (8)
  1. BLINDED LONAFARNIB (SCH 66336) STUDY CAPSULES [Suspect]
     Indication: BREAST CANCER METASTATIC
     Dosage: 200 MG BID ORAL
     Route: 048
     Dates: start: 20050105, end: 20050720
  2. ANASTROZOLE TABLETS [Suspect]
     Indication: BREAST CANCER METASTATIC
     Dosage: 1 MG QAM ORAL
     Route: 048
     Dates: start: 20050106, end: 20050720
  3. FLUOROURACIL [Suspect]
     Indication: BREAST CANCER METASTATIC
     Dosage: 750 MG Q3W INTRAVENOUS
     Route: 042
     Dates: start: 20050801, end: 20050801
  4. DOXORUBICIN HCL [Suspect]
     Indication: BREAST CANCER METASTATIC
     Dosage: 75 MG Q3WK INTRAVENOUS
     Route: 042
     Dates: start: 20050801, end: 20050801
  5. CYCLOPHOSPHAMIDE [Suspect]
     Indication: BREAST CANCER METASTATIC
     Dosage: 750 MG Q3W INTRAVENOUS
     Route: 042
     Dates: start: 20050801, end: 20050801
  6. ACETAMINOPHEN [Concomitant]
     Indication: PAIN PROPHYLAXIS
     Dosage: 500 MG TID ORAL
     Route: 048
     Dates: start: 20040201
  7. FERROUS GLUCONATE TABLETS [Concomitant]
     Indication: HAEMOGLOBIN DECREASED
     Dosage: 1 QAM ORAL
     Route: 048
     Dates: start: 20050202
  8. FOLIC ACID TAB [Concomitant]
     Indication: HAEMOGLOBIN DECREASED
     Dosage: 5 MG QAM ORAL
     Route: 048
     Dates: start: 20050202

REACTIONS (1)
  - FEBRILE NEUTROPENIA [None]
